FAERS Safety Report 8604901-X (Version None)
Quarter: 2012Q3

REPORT INFORMATION
  Report Type: 
  Country: None (occurrence: None)
  Receive Date: 20120820
  Receipt Date: 20120809
  Transmission Date: 20120928
  Serious: Yes (Death)
  Sender: FDA-Public Use
  Company Number: US-ASTELLAS-2012US006548

PATIENT
  Sex: Male

DRUGS (2)
  1. AMEVIVE [Suspect]
     Dosage: UNK
     Route: 030
     Dates: start: 20050816, end: 20051101
  2. AMEVIVE [Suspect]
     Indication: PSORIASIS
     Dosage: UNK
     Route: 030
     Dates: start: 20050301, end: 20050517

REACTIONS (2)
  - CARDIAC FAILURE CONGESTIVE [None]
  - CHRONIC OBSTRUCTIVE PULMONARY DISEASE [None]
